FAERS Safety Report 6711043-7 (Version None)
Quarter: 2010Q2

REPORT INFORMATION
  Report Type: 
  Country: None (occurrence: None)
  Receive Date: 20100505
  Receipt Date: 20100426
  Transmission Date: 20101027
  Serious: Yes (Hospitalization, Other)
  Sender: FDA-Public Use
  Company Number: US-JNJFOC-20100303506

PATIENT
  Sex: Male
  Weight: 97.52 kg

DRUGS (12)
  1. LEVAQUIN [Suspect]
     Indication: COUGH
     Route: 065
  2. LEVAQUIN [Suspect]
     Route: 065
  3. LEVAQUIN [Suspect]
     Route: 065
  4. LEVAQUIN [Suspect]
     Route: 065
  5. LEVAQUIN [Suspect]
     Indication: SINUS DISORDER
     Route: 065
  6. LEVAQUIN [Suspect]
     Route: 065
  7. LEVAQUIN [Suspect]
     Route: 065
  8. LEVAQUIN [Suspect]
     Route: 065
  9. LEVAQUIN [Suspect]
     Indication: DRUG USE FOR UNKNOWN INDICATION
     Route: 065
  10. LEVAQUIN [Suspect]
     Route: 065
  11. LEVAQUIN [Suspect]
     Route: 065
  12. LEVAQUIN [Suspect]
     Route: 065

REACTIONS (2)
  - LIGAMENT INJURY [None]
  - TENDON RUPTURE [None]
